FAERS Safety Report 4592895-6 (Version None)
Quarter: 2005Q1

REPORT INFORMATION
  Report Type: 
  Country: None (occurrence: None)
  Receive Date: 20050228
  Receipt Date: 20050124
  Transmission Date: 20050727
  Serious: Yes (Hospitalization, Disabling)
  Sender: FDA-Public Use
  Company Number: CH-AMGEN-UK109271

PATIENT
  Sex: Female
  Weight: 52 kg

DRUGS (1)
  1. NEUPOGEN [Suspect]
     Indication: AGRANULOCYTOSIS
     Route: 058
     Dates: start: 19970101

REACTIONS (14)
  - AGRANULOCYTOSIS [None]
  - BONE MARROW DEPRESSION [None]
  - C-REACTIVE PROTEIN INCREASED [None]
  - DRUG RESISTANCE [None]
  - GENERAL PHYSICAL HEALTH DETERIORATION [None]
  - INFECTION [None]
  - IRON DEFICIENCY [None]
  - LYMPHOPENIA [None]
  - NORMOCHROMIC NORMOCYTIC ANAEMIA [None]
  - PYREXIA [None]
  - SINUSITIS [None]
  - TONSILLITIS [None]
  - TRACHEOBRONCHITIS [None]
  - WHITE BLOOD CELL COUNT DECREASED [None]
